FAERS Safety Report 7396071-3 (Version None)
Quarter: 2011Q2

REPORT INFORMATION
  Report Type: 
  Country: None (occurrence: None)
  Receive Date: 20110406
  Receipt Date: 20110328
  Transmission Date: 20111010
  Serious: Yes (Hospitalization, Congenital Anomaly, Other)
  Sender: FDA-Public Use
  Company Number: FR-ELI_LILLY_AND_COMPANY-FR201103007924

PATIENT
  Sex: Male
  Weight: 2.85 kg

DRUGS (12)
  1. LEVOTHYROX [Concomitant]
     Dosage: UNK
     Route: 064
     Dates: end: 20110115
  2. PROZAC [Suspect]
     Dosage: 20 MG, QD
     Route: 064
     Dates: end: 20101201
  3. TERCIAN [Concomitant]
     Dosage: 30 DF, QD
     Route: 064
     Dates: end: 20101201
  4. XANAX [Concomitant]
     Dosage: 0.5 MG, EVERY 3 HRS
     Route: 064
     Dates: end: 20110115
  5. ZYPREXA [Suspect]
     Dosage: 10 MG, QD
     Route: 064
  6. TERCIAN [Concomitant]
     Dosage: 30 DF, QD
     Route: 064
     Dates: end: 20101201
  7. LEVOTHYROX [Concomitant]
     Dosage: UNK
     Route: 064
     Dates: end: 20110115
  8. PROZAC [Suspect]
     Dosage: 20 MG, QD
     Route: 064
     Dates: end: 20101201
  9. FLIXOTIDE [Concomitant]
     Dosage: UNK
     Route: 064
     Dates: end: 20110115
  10. ZYPREXA [Suspect]
     Dosage: 10 MG, QD
     Route: 064
  11. XANAX [Concomitant]
     Dosage: 0.5 MG, EVERY 3 HRS
     Route: 064
     Dates: end: 20110115
  12. FLIXOTIDE [Concomitant]
     Dosage: UNK
     Route: 064
     Dates: end: 20110115

REACTIONS (5)
  - IRIS COLOBOMA [None]
  - RETINAL COLOBOMA [None]
  - PREMATURE BABY [None]
  - DRUG EXPOSURE DURING PREGNANCY [None]
  - BLOOD CREATINE INCREASED [None]
